FAERS Safety Report 17661424 (Version 1)
Quarter: 2020Q2

REPORT INFORMATION
  Report Type: Spontaneous
  Country: US (occurrence: US)
  Receive Date: 20200413
  Receipt Date: 20200413
  Transmission Date: 20200713
  Serious: Yes (Other)
  Sender: FDA-Public Use
  Company Number: None

PATIENT
  Age: 73 Year
  Sex: Male
  Weight: 78.75 kg

DRUGS (3)
  1. AZELASTINE HCL 0.1% 30ML [Suspect]
     Active Substance: AZELASTINE
     Indication: RHINITIS ALLERGIC
     Dosage: ?          QUANTITY:2 SPRAY(S);?
     Route: 055
  2. RAINBOW MULTI VITAMIN [Concomitant]
  3. FISH OIL [Concomitant]
     Active Substance: FISH OIL

REACTIONS (2)
  - Arthralgia [None]
  - Myalgia [None]

NARRATIVE: CASE EVENT DATE: 20200401
